FAERS Safety Report 19488899 (Version 1)
Quarter: 2021Q3

REPORT INFORMATION
  Report Type: Spontaneous
  Country: CN (occurrence: CN)
  Receive Date: 20210702
  Receipt Date: 20210702
  Transmission Date: 20211014
  Serious: Yes (Other)
  Sender: FDA-Public Use
  Company Number: CN-ROCHE-2858242

PATIENT
  Age: 57 Year
  Sex: Female

DRUGS (8)
  1. PACLITAXEL. [Suspect]
     Active Substance: PACLITAXEL
     Indication: METASTASES TO LYMPH NODES
     Route: 041
     Dates: start: 20210518, end: 20210518
  2. SODIUM CHLORIDE IV [Concomitant]
     Active Substance: SODIUM CHLORIDE
     Route: 041
     Dates: start: 20210518, end: 20210518
  3. GLUCOSE [Concomitant]
     Active Substance: DEXTROSE
     Route: 041
     Dates: start: 20210518, end: 20210518
  4. HERCEPTIN [Suspect]
     Active Substance: TRASTUZUMAB
     Indication: METASTASES TO LYMPH NODES
  5. CARBOPLATIN. [Suspect]
     Active Substance: CARBOPLATIN
     Indication: CANCER SURGERY
  6. CARBOPLATIN. [Suspect]
     Active Substance: CARBOPLATIN
     Indication: METASTASES TO LYMPH NODES
     Route: 041
     Dates: start: 20210518, end: 20210518
  7. PACLITAXEL. [Suspect]
     Active Substance: PACLITAXEL
     Indication: CANCER SURGERY
  8. HERCEPTIN [Suspect]
     Active Substance: TRASTUZUMAB
     Indication: CANCER SURGERY
     Route: 041
     Dates: start: 20210518, end: 20210518

REACTIONS (2)
  - Agranulocytosis [Recovering/Resolving]
  - Leukopenia [Recovering/Resolving]

NARRATIVE: CASE EVENT DATE: 20210524
